FAERS Safety Report 7930507-1 (Version None)
Quarter: 2011Q4

REPORT INFORMATION
  Report Type: 
  Country: None (occurrence: None)
  Receive Date: 20111121
  Receipt Date: 20090513
  Transmission Date: 20120403
  Serious: Yes (Other)
  Sender: FDA-Public Use
  Company Number: PHHY2010TW16492

PATIENT
  Sex: Female

DRUGS (2)
  1. GLEEVEC [Suspect]
     Indication: GASTROINTESTINAL STROMAL TUMOUR
     Dosage: 400 MG, QD
     Route: 048
  2. GLEEVEC [Suspect]
     Dosage: 300 MG, UNK
     Route: 048
     Dates: start: 20101201

REACTIONS (28)
  - NEOPLASM MALIGNANT [None]
  - HAND FRACTURE [None]
  - OROPHARYNGEAL PAIN [None]
  - COUGH [None]
  - EYE PAIN [None]
  - VISION BLURRED [None]
  - OEDEMA [None]
  - LYMPHATIC OBSTRUCTION [None]
  - BLISTER [None]
  - EYE SWELLING [None]
  - MUSCLE SPASMS [None]
  - EYELID OEDEMA [None]
  - DIZZINESS [None]
  - LACRIMATION INCREASED [None]
  - NASOPHARYNGITIS [None]
  - DISCOMFORT [None]
  - BLOOD BLISTER [None]
  - FAECES DISCOLOURED [None]
  - DIARRHOEA [None]
  - THROAT IRRITATION [None]
  - MUSCULOSKELETAL DISCOMFORT [None]
  - VOMITING [None]
  - OEDEMA PERIPHERAL [None]
  - NAUSEA [None]
  - GASTROINTESTINAL STROMAL TUMOUR [None]
  - HYPERTENSION [None]
  - FACE OEDEMA [None]
  - CHILLS [None]
